FAERS Safety Report 11227581 (Version 1)
Quarter: 2015Q2

REPORT INFORMATION
  Report Type: Spontaneous
  Country: DK (occurrence: DK)
  Receive Date: 20150630
  Receipt Date: 20150630
  Transmission Date: 20150821
  Serious: Yes (Hospitalization)
  Sender: FDA-Public Use
  Company Number: DK-JNJFOC-20150617103

PATIENT
  Age: 61 Year
  Sex: Male

DRUGS (6)
  1. SELOZOK [Concomitant]
     Active Substance: METOPROLOL SUCCINATE
     Route: 065
  2. PANODIL [Concomitant]
     Active Substance: ACETAMINOPHEN
     Route: 065
  3. METFORMIN [Concomitant]
     Active Substance: METFORMIN HYDROCHLORIDE
     Route: 065
  4. XARELTO [Suspect]
     Active Substance: RIVAROXABAN
     Indication: MYOCARDIAL ISCHAEMIA
     Route: 048
     Dates: start: 201207, end: 20140904
  5. SIMVASTATIN. [Concomitant]
     Active Substance: SIMVASTATIN
     Route: 065
  6. ACETYLSALICYLSYRE [Interacting]
     Active Substance: ASPIRIN
     Indication: PRODUCT USED FOR UNKNOWN INDICATION
     Route: 065

REACTIONS (16)
  - Memory impairment [Not Recovered/Not Resolved]
  - Speech disorder [Unknown]
  - Dizziness [Recovered/Resolved]
  - Muscle spasms [Unknown]
  - Cognitive disorder [Unknown]
  - Drug interaction [Unknown]
  - Malaise [Recovered/Resolved]
  - Head discomfort [Unknown]
  - Haemorrhagic stroke [Unknown]
  - Visual impairment [Not Recovered/Not Resolved]
  - Respiratory therapy [Recovered/Resolved]
  - Confusional state [Recovered/Resolved]
  - Visual field defect [Unknown]
  - Fatigue [Unknown]
  - Hypertension [Unknown]
  - Hemianopia homonymous [Unknown]

NARRATIVE: CASE EVENT DATE: 201407
